FAERS Safety Report 21051232 (Version 1)
Quarter: 2022Q3

REPORT INFORMATION
  Report Type: Spontaneous
  Country: NL (occurrence: NL)
  Receive Date: 20220707
  Receipt Date: 20220707
  Transmission Date: 20221027
  Serious: Yes (Other)
  Sender: FDA-Public Use
  Company Number: None

PATIENT
  Sex: Male
  Weight: 77 kg

DRUGS (8)
  1. SULFAMETHOXAZOLE\TRIMETHOPRIM [Suspect]
     Active Substance: SULFAMETHOXAZOLE\TRIMETHOPRIM
     Indication: Urinary tract infection
     Dosage: 2 DOSAGE FORMS DAILY; COTRIMOXAZOL 960 TABLET 160/800MG / BRAND NAME NOT SPECIFIED
     Dates: start: 20220524, end: 20220603
  2. DICLOFENAC SODIUM [Concomitant]
     Active Substance: DICLOFENAC SODIUM
     Indication: Product used for unknown indication
     Dosage: FORM STRENGTH 50MG / BRAND NAME NOT SPECIFIED, THERAPY START DATE AND END DATE: ASKU
  3. PANTOPRAZOLE SODIUM [Concomitant]
     Active Substance: PANTOPRAZOLE SODIUM
     Indication: Product used for unknown indication
     Dosage: FORM STRENGTH 20MG / BRAND NAME NOT SPECIFIED, THERAPY START DATE AND END DATE: ASKU
  4. ELIQUIS [Concomitant]
     Active Substance: APIXABAN
     Indication: Product used for unknown indication
     Dosage: FORM STRENGTH 5MG / BRAND NAME NOT SPECIFIED, THERAPY START DATE AND END DATE: ASKU
  5. METOPROLOL SUCCINATE [Concomitant]
     Active Substance: METOPROLOL SUCCINATE
     Indication: Product used for unknown indication
     Dosage: FORM STRENGTH 25  MG / BRAND NAME NOT SPECIFIED, THERAPY START DATE AND END DATE: ASKU
  6. BISACODYL [Concomitant]
     Active Substance: BISACODYL
     Indication: Product used for unknown indication
     Dosage: FORM STRENGTH 5 MG / BRAND NAME NOT SPECIFIED, THERAPY START DATE AND END DATE: ASKU
  7. GALANTAMINE [Concomitant]
     Active Substance: GALANTAMINE
     Indication: Product used for unknown indication
     Dosage: FORM STRENGTH 24 MG / BRAND NAME NOT SPECIFIED, THERAPY START DATE AND END DATE: ASKU
  8. PLEINVUE [Concomitant]
     Indication: Product used for unknown indication
     Dosage: POWDER FOR BEVERAGE IN SACHET, THERAPY START DATE AND END DATE: ASKU

REACTIONS (1)
  - Deafness [Not Recovered/Not Resolved]
